FAERS Safety Report 6216761-5 (Version None)
Quarter: 2009Q2

REPORT INFORMATION
  Report Type: 
  Country: None (occurrence: None)
  Receive Date: 20090603
  Receipt Date: 20090603
  Transmission Date: 20091009
  Serious: Yes (Other)
  Sender: FDA-Public Use
  Company Number: None

PATIENT
  Age: 33 Year
  Sex: Male
  Weight: 34.0198 kg

DRUGS (2)
  1. ADDERALL 30 [Suspect]
     Indication: ATTENTION DEFICIT/HYPERACTIVITY DISORDER
     Dosage: 30MG 2XDAY PO
     Route: 048
     Dates: start: 20090601, end: 20090602
  2. ADDERALL 30 [Suspect]
     Indication: DEPRESSION
     Dosage: 30MG 2XDAY PO
     Route: 048
     Dates: start: 20090601, end: 20090602

REACTIONS (4)
  - ANXIETY [None]
  - DRUG INEFFECTIVE [None]
  - NAUSEA [None]
  - PRODUCT SUBSTITUTION ISSUE [None]
